FAERS Safety Report 8766923 (Version 2)
Quarter: 2012Q4

REPORT INFORMATION
  Report Type: 
  Country: PL (occurrence: PL)
  Receive Date: 20120903
  Receipt Date: 20121206
  Transmission Date: 20130627
  Serious: Yes (Other)
  Sender: FDA-Public Use
  Company Number: PL-PFIZER INC-2012214987

PATIENT
  Age: 56 Year
  Sex: Female

DRUGS (3)
  1. CISPLATIN [Suspect]
     Indication: SQUAMOUS CELL CARCINOMA
     Dosage: 50 mg/m2, 1 in 3 weeks, received 6 courses
     Route: 065
     Dates: start: 201010, end: 201102
  2. CISPLATIN [Suspect]
     Indication: CERVICAL CANCER STAGE IV
  3. TOPOTECAN [Suspect]
     Indication: SQUAMOUS CELL CARCINOMA
     Dosage: 0.75 mg/m2 for 3 days; received six courses
     Route: 065
     Dates: start: 201010, end: 201102

REACTIONS (10)
  - Shock haemorrhagic [Recovered/Resolved]
  - Genital haemorrhage [Recovered/Resolved]
  - Peritoneal haemorrhage [Recovered/Resolved]
  - Hydronephrosis [None]
  - Paradoxical drug reaction [None]
  - Renal failure acute [None]
  - Anaemia [None]
  - Procedural complication [None]
  - Necrosis [None]
  - Venous injury [None]
